FAERS Safety Report 8260664-1 (Version None)
Quarter: 2012Q2

REPORT INFORMATION
  Report Type: 
  Country: None (occurrence: None)
  Receive Date: 20120405
  Receipt Date: 20120323
  Transmission Date: 20120825
  Serious: Yes (Other)
  Sender: FDA-Public Use
  Company Number: BR-AMGEN-BRASP2012019762

PATIENT
  Sex: Male
  Weight: 76 kg

DRUGS (1)
  1. ENBREL [Suspect]
     Indication: ANKYLOSING SPONDYLITIS
     Dosage: 50 MG, ONCE WEEKLY
     Route: 058
     Dates: start: 20060601

REACTIONS (6)
  - SPONDYLITIS [None]
  - INJECTION SITE PAIN [None]
  - PAIN [None]
  - CARDIAC DISORDER [None]
  - MONOPLEGIA [None]
  - FATIGUE [None]
